FAERS Safety Report 7537094-0 (Version None)
Quarter: 2011Q2

REPORT INFORMATION
  Report Type: 
  Country: None (occurrence: None)
  Receive Date: 20110609
  Receipt Date: 20110530
  Transmission Date: 20111010
  Serious: Yes (Hospitalization)
  Sender: FDA-Public Use
  Company Number: PHHY2011CN15182

PATIENT
  Age: 33 Year
  Sex: Female

DRUGS (1)
  1. TEGRETOL [Suspect]
     Indication: EPILEPSY
     Dosage: 100 MG, BID

REACTIONS (7)
  - PLACENTAL DISORDER [None]
  - OVARIAN CYST [None]
  - VAGINAL DISCHARGE [None]
  - NAUSEA [None]
  - DRUG EXPOSURE DURING PREGNANCY [None]
  - DECREASED APPETITE [None]
  - NORMAL NEWBORN [None]
